FAERS Safety Report 8007760-1 (Version None)
Quarter: 2011Q4

REPORT INFORMATION
  Report Type: 
  Country: None (occurrence: None)
  Receive Date: 20111227
  Receipt Date: 20111221
  Transmission Date: 20120403
  Serious: No
  Sender: FDA-Public Use
  Company Number: US-BAYER-2011-122828

PATIENT
  Age: 76 Year
  Sex: Male

DRUGS (2)
  1. STAXYN [Suspect]
     Indication: ERECTILE DYSFUNCTION
     Dosage: 10 MG, UNK
     Route: 060
     Dates: start: 20111220
  2. ANTIHYPERTENSIVES [Concomitant]

REACTIONS (1)
  - ERECTILE DYSFUNCTION [None]
